FAERS Safety Report 14610210 (Version 1)
Quarter: 2018Q1

REPORT INFORMATION
  Report Type: Spontaneous
  Country: US (occurrence: US)
  Receive Date: 20180307
  Receipt Date: 20180307
  Transmission Date: 20180509
  Serious: No
  Sender: FDA-Public Use
  Company Number: US-BAYER-2018-042856

PATIENT
  Age: 83 Year
  Sex: Female
  Weight: 74 kg

DRUGS (1)
  1. ALEVE [Suspect]
     Active Substance: NAPROXEN SODIUM
     Indication: PAIN
     Dosage: 1 DF, UNK
     Route: 048

REACTIONS (3)
  - Product packaging issue [None]
  - Product package associated injury [Recovered/Resolved]
  - Wrong technique in product usage process [None]

NARRATIVE: CASE EVENT DATE: 20180302
